FAERS Safety Report 14284048 (Version 1)
Quarter: 2017Q4

REPORT INFORMATION
  Report Type: Spontaneous
  Country: SI (occurrence: SI)
  Receive Date: 20171214
  Receipt Date: 20171214
  Transmission Date: 20180321
  Serious: Yes (Hospitalization, Disabling, Other)
  Sender: FDA-Public Use
  Company Number: None

PATIENT
  Age: 21 Year
  Sex: Female
  Weight: 61 kg

DRUGS (4)
  1. ELOCON [Suspect]
     Active Substance: MOMETASONE FUROATE
     Indication: DERMATITIS ATOPIC
     Route: 061
  2. ADVANTAN [Suspect]
     Active Substance: METHYLPREDNISOLONE ACEPONATE
     Indication: ECZEMA
     Route: 061
  3. ADVANTAN [Suspect]
     Active Substance: METHYLPREDNISOLONE ACEPONATE
     Indication: DERMATITIS ATOPIC
     Route: 061
  4. ELOCON [Suspect]
     Active Substance: MOMETASONE FUROATE
     Indication: ECZEMA
     Route: 061

REACTIONS (11)
  - Erythema [None]
  - Loss of personal independence in daily activities [None]
  - Therapy cessation [None]
  - Asthenia [None]
  - Drug dependence [None]
  - Pain [None]
  - Food allergy [None]
  - Insomnia [None]
  - Adverse drug reaction [None]
  - Eczema [None]
  - Secretion discharge [None]

NARRATIVE: CASE EVENT DATE: 20150810
